FAERS Safety Report 7050259-X (Version None)
Quarter: 2010Q4

REPORT INFORMATION
  Report Type: 
  Country: None (occurrence: None)
  Receive Date: 20101018
  Receipt Date: 20101006
  Transmission Date: 20110411
  Serious: Yes (Other)
  Sender: FDA-Public Use
  Company Number: US-MYLANLABS-2010S1018537

PATIENT
  Age: 34 Year
  Sex: Male
  Weight: 71.22 kg

DRUGS (5)
  1. TRAMADOL HYDROCHLORIDE [Suspect]
     Indication: CANCER PAIN
     Route: 048
     Dates: start: 20060101, end: 20100701
  2. TRAMADOL HYDROCHLORIDE [Suspect]
     Route: 048
     Dates: start: 20060101, end: 20100701
  3. TRAMADOL HYDROCHLORIDE [Suspect]
     Route: 048
     Dates: start: 20100801, end: 20101004
  4. KEPPRA [Suspect]
     Indication: CONVULSION
     Route: 048
     Dates: start: 20050101
  5. PERCOCET [Concomitant]
     Indication: BREAKTHROUGH PAIN
     Route: 048

REACTIONS (5)
  - AMNESIA [None]
  - CONVULSION [None]
  - DRUG PRESCRIBING ERROR [None]
  - DRUG WITHDRAWAL SYNDROME [None]
  - RASH [None]
